FAERS Safety Report 26170145 (Version 1)
Quarter: 2025Q4

REPORT INFORMATION
  Report Type: Report from Study
  Country: EU (occurrence: EU)
  Receive Date: 20251217
  Receipt Date: 20251217
  Transmission Date: 20260117
  Serious: Yes (Other)
  Sender: ROCHE
  Company Number: EU-ROCHE-10000446321

PATIENT
  Age: 61 Year
  Sex: Male
  Weight: 82 kg

DRUGS (6)
  1. EMICIZUMAB [Suspect]
     Active Substance: EMICIZUMAB
     Indication: Haemophilia A without inhibitors
     Dosage: LOADING DOSE
     Route: 058
     Dates: start: 20211108, end: 20211122
  2. EMICIZUMAB [Suspect]
     Active Substance: EMICIZUMAB
     Dosage: LOADING DOSE
     Route: 058
     Dates: start: 20211129
  3. DULOXETINE [Concomitant]
     Active Substance: DULOXETINE
     Indication: Anxiety
     Route: 048
     Dates: start: 202202
  4. MIRTAZAPINE [Concomitant]
     Active Substance: MIRTAZAPINE
     Indication: Depression
     Route: 048
     Dates: start: 1995
  5. DICLOFENAC [Concomitant]
     Active Substance: DICLOFENAC
     Indication: Depression
     Route: 048
     Dates: start: 2019
  6. Eterocoxib [Concomitant]
     Indication: Haemophilic arthropathy
     Route: 048
     Dates: start: 2015

REACTIONS (1)
  - Factor VIII inhibition [Unknown]

NARRATIVE: CASE EVENT DATE: 20251029
